FAERS Safety Report 9800255 (Version 2)
Quarter: 2014Q1

REPORT INFORMATION
  Report Type: Spontaneous
  Country: US (occurrence: US)
  Receive Date: 20140106
  Receipt Date: 20140207
  Transmission Date: 20141002
  Serious: Yes (Other)
  Sender: FDA-Public Use
  Company Number: US-009507513-1312USA009809

PATIENT
  Age: 75 Year
  Sex: Female
  Weight: 92.97 kg

DRUGS (1)
  1. OXYTROL FOR WOMEN [Suspect]
     Indication: HYPERTONIC BLADDER
     Dosage: UNK UNK, UNKNOWN
     Route: 062
     Dates: start: 20131206, end: 20131213

REACTIONS (10)
  - Deafness [Recovered/Resolved]
  - Haemorrhage [Not Recovered/Not Resolved]
  - Groin pain [Not Recovered/Not Resolved]
  - Insomnia [Not Recovered/Not Resolved]
  - Constipation [Not Recovered/Not Resolved]
  - Malaise [Not Recovered/Not Resolved]
  - Headache [Not Recovered/Not Resolved]
  - Vision blurred [Recovered/Resolved]
  - Dizziness [Not Recovered/Not Resolved]
  - Pruritus [Recovered/Resolved]
